FAERS Safety Report 19473303 (Version 2)
Quarter: 2021Q3

REPORT INFORMATION
  Report Type: Report from Study
  Country: US (occurrence: US)
  Receive Date: 20210629
  Receipt Date: 20210729
  Transmission Date: 20211014
  Serious: No
  Sender: FDA-Public Use
  Company Number: NVSC2021US135020

PATIENT
  Age: 62 Year
  Sex: Male

DRUGS (1)
  1. ENTRESTO [Suspect]
     Active Substance: SACUBITRIL\VALSARTAN
     Indication: PRODUCT USED FOR UNKNOWN INDICATION
     Dosage: 1 DF,  (49/51 MG)
     Route: 048
     Dates: start: 20201228

REACTIONS (7)
  - Weight increased [Unknown]
  - Asthenia [Recovering/Resolving]
  - Sleep disorder [Not Recovered/Not Resolved]
  - Ejection fraction decreased [Not Recovered/Not Resolved]
  - Dizziness [Recovering/Resolving]
  - Product dose omission issue [Unknown]
  - Product prescribing error [Recovering/Resolving]

NARRATIVE: CASE EVENT DATE: 202101
